FAERS Safety Report 14508540 (Version 3)
Quarter: 2018Q2

REPORT INFORMATION
  Report Type: Other
  Country: NL (occurrence: NL)
  Receive Date: 20180209
  Receipt Date: 20180416
  Transmission Date: 20180711
  Serious: Yes (Hospitalization, Other)
  Sender: FDA-Public Use
  Company Number: NL-MACLEODS PHARMACEUTICALS US LTD-MAC2018009381

PATIENT

DRUGS (15)
  1. CELECOXIB CAPSULE [Suspect]
     Active Substance: CELECOXIB
     Dosage: 200 MG, QD
     Route: 048
     Dates: start: 20130226
  2. PARACETAMOL [Suspect]
     Active Substance: ACETAMINOPHEN
     Dosage: 3000 MG, QD
     Route: 048
     Dates: start: 20130226
  3. ROACTEMRA [Suspect]
     Active Substance: TOCILIZUMAB
     Dosage: 600 MG, UNK, EVERY MONTH,  SOLUTION FOR INFUSION
     Route: 042
     Dates: start: 20160315
  4. BISOPROLOL [Concomitant]
     Active Substance: BISOPROLOL
     Indication: HYPERTENSION
     Dosage: 5 MG, QD
     Route: 048
     Dates: start: 20051024
  5. ROACTEMRA [Suspect]
     Active Substance: TOCILIZUMAB
     Dosage: 600 MG, UNK, EVERY MONTH, SOLUTION FOR INFUSION
     Route: 042
     Dates: start: 20160119
  6. ATORVASTATIN 20 MG [Concomitant]
     Active Substance: ATORVASTATIN
     Indication: PRODUCT USED FOR UNKNOWN INDICATION
     Dosage: 20 MG, QD
     Route: 048
     Dates: start: 20051024
  7. CELECOXIB CAPSULE [Suspect]
     Active Substance: CELECOXIB
     Indication: RHEUMATOID ARTHRITIS
     Dosage: 400 MG, QD
     Route: 048
     Dates: start: 20130226
  8. PARACETAMOL [Suspect]
     Active Substance: ACETAMINOPHEN
     Dosage: 1000 MG, QD
     Route: 048
  9. ROACTEMRA [Suspect]
     Active Substance: TOCILIZUMAB
     Indication: RHEUMATOID ARTHRITIS
     Dosage: 8 MG/KG, UNK, EVERY 4 WEEK, SOLUTION FOR INFUSION
     Route: 042
     Dates: start: 20120327
  10. ROACTEMRA [Suspect]
     Active Substance: TOCILIZUMAB
     Dosage: 600 MG, UNK, EVERY MONTH,  SOLUTION FOR INFUSION, LAST DOSE PRIOR TO EVENT WAS RECEIVED ON 15/03/16
     Route: 042
     Dates: start: 20130731
  11. ROACTEMRA [Suspect]
     Active Substance: TOCILIZUMAB
     Dosage: 600 MG, UNK, EVERY MONTH, SOLUTION FOR INFUSION
     Route: 042
     Dates: start: 20151222
  12. PARACETAMOL [Suspect]
     Active Substance: ACETAMINOPHEN
     Indication: RHEUMATOID ARTHRITIS
     Dosage: 3000 MG, QD
     Route: 048
     Dates: start: 20130226
  13. ROACTEMRA [Suspect]
     Active Substance: TOCILIZUMAB
     Dosage: 300 MG, UNK, EVERY MONTH, SOLUTION FOR INFUSION
     Route: 042
     Dates: start: 20160305
  14. ASPIRIN. [Concomitant]
     Active Substance: ASPIRIN
     Indication: MYOCARDIAL INFARCTION
     Dosage: 80 MG, QD
     Route: 048
     Dates: start: 20051024
  15. OMEPRAZOLE CAPSULES [Concomitant]
     Active Substance: OMEPRAZOLE
     Indication: PROPHYLAXIS
     Dosage: 40 MG, QD
     Route: 048
     Dates: start: 20010521

REACTIONS (2)
  - Localised infection [Recovered/Resolved]
  - Wound infection [Recovered/Resolved]

NARRATIVE: CASE EVENT DATE: 20160415
